FAERS Safety Report 4545234-0 (Version None)
Quarter: 2004Q4

REPORT INFORMATION
  Report Type: 
  Country: None (occurrence: None)
  Receive Date: 20041222
  Receipt Date: 20040707
  Transmission Date: 20050328
  Serious: Yes (Hospitalization)
  Sender: FDA-Public Use
  Company Number: USA040771897

PATIENT
  Age: 73 Year
  Sex: Female
  Weight: 107 kg

DRUGS (1)
  1. HUMULIN-HUMAN INSULIN (RDNA) :25% LISPRO, 75% NPL (LI [Suspect]

REACTIONS (1)
  - FOOT FRACTURE [None]
